FAERS Safety Report 14390585 (Version 1)
Quarter: 2018Q1

REPORT INFORMATION
  Report Type: Spontaneous
  Country: EC (occurrence: EC)
  Receive Date: 20180116
  Receipt Date: 20180116
  Transmission Date: 20180509
  Serious: Yes (Hospitalization, Other)
  Sender: FDA-Public Use
  Company Number: EC-B.I. PHARMACEUTICALS,INC./RIDGEFIELD-2018-BI-002102

PATIENT
  Sex: Male

DRUGS (1)
  1. JARDIANCE DUO [Suspect]
     Active Substance: EMPAGLIFLOZIN\METFORMIN HYDROCHLORIDE
     Indication: TYPE 2 DIABETES MELLITUS
     Route: 065
     Dates: end: 20180104

REACTIONS (3)
  - Cognitive disorder [Recovering/Resolving]
  - Diabetic ketoacidosis [Recovering/Resolving]
  - Hyperosmolar state [Recovering/Resolving]

NARRATIVE: CASE EVENT DATE: 20180110
